FAERS Safety Report 5941055-2 (Version None)
Quarter: 2008Q4

REPORT INFORMATION
  Report Type: 
  Country: None (occurrence: None)
  Receive Date: 20081104
  Receipt Date: 20081028
  Transmission Date: 20090506
  Serious: Yes (Other)
  Sender: FDA-Public Use
  Company Number: US-ROXANE LABORATORIES, INC.-2008-RO-00173RO

PATIENT
  Age: 3 Year
  Sex: Male

DRUGS (7)
  1. MYCOPHENOLATE MOFETIL [Suspect]
     Indication: IMMUNOSUPPRESSION
     Dosage: 250MG
  2. TACROLIMUS [Suspect]
     Indication: IMMUNOSUPPRESSION
  3. STEROID TAPER [Suspect]
     Indication: IMMUNOSUPPRESSION
  4. URSODIOL [Suspect]
     Indication: JAUNDICE
  5. NALTREXONE [Suspect]
     Indication: PRURITUS
  6. CHOLESTYRAMINE [Concomitant]
     Indication: DIARRHOEA
  7. VALGANCICLOVIR [Concomitant]

REACTIONS (5)
  - 5'NUCLEOTIDASE INCREASED [None]
  - DIARRHOEA [None]
  - EPSTEIN-BARR VIRUS INFECTION [None]
  - GASTROENTERITIS VIRAL [None]
  - HYPERPHOSPHATASAEMIA [None]
